FAERS Safety Report 8564527-3 (Version None)
Quarter: 2012Q3

REPORT INFORMATION
  Report Type: 
  Country: None (occurrence: None)
  Receive Date: 20120803
  Receipt Date: 20120725
  Transmission Date: 20120928
  Serious: Yes (Hospitalization)
  Sender: FDA-Public Use
  Company Number: US-BRISTOL-MYERS SQUIBB COMPANY-16677460

PATIENT
  Age: 68 Year
  Sex: Male

DRUGS (10)
  1. ATORVASTATIN [Concomitant]
  2. SITAGLIPTIN PHOSPHATE [Concomitant]
  3. METOPROLOL TARTRATE [Concomitant]
  4. GLIPIZIDE [Concomitant]
  5. ASPIRIN [Concomitant]
  6. COLCHICINE [Suspect]
     Indication: GOUT
  7. RAMIPRIL [Concomitant]
  8. METFORMIN HCL [Suspect]
  9. EPINEPHRINE [Suspect]
     Indication: ANAPHYLACTIC REACTION
     Dosage: 1:1000
     Route: 030
  10. CELECOXIB [Suspect]
     Indication: GOUT

REACTIONS (2)
  - CORONARY ARTERY THROMBOSIS [None]
  - ANAPHYLACTIC SHOCK [None]
